FAERS Safety Report 4674273-4 (Version None)
Quarter: 2005Q2

REPORT INFORMATION
  Report Type: 
  Country: None (occurrence: None)
  Receive Date: 20050524
  Receipt Date: 20050516
  Transmission Date: 20051028
  Serious: Yes (Other)
  Sender: FDA-Public Use
  Company Number: 2005049222

PATIENT
  Age: 62 Year
  Sex: Female

DRUGS (9)
  1. CELEBREX [Suspect]
     Indication: ARTHRITIS
     Dosage: 400 MG (200 MG, 2 IN 1 D), ORAL
     Route: 048
     Dates: end: 20050207
  2. BEXTRA [Suspect]
     Indication: OSTEOARTHRITIS
     Dosage: 20 MG (20 MG, 1 IN 1 D), ORAL
     Route: 048
     Dates: start: 20050404, end: 20050421
  3. SEROQUEL [Concomitant]
  4. ACTOS [Concomitant]
  5. PRINIVIL [Concomitant]
  6. MICRONASE (GLIBENCLAMIDE0 [Concomitant]
  7. LOVASTATIN [Concomitant]
  8. TOPROL-XL [Concomitant]
  9. GLUCOPHAGE [Concomitant]

REACTIONS (3)
  - COLITIS [None]
  - INTESTINAL HAEMORRHAGE [None]
  - WEIGHT DECREASED [None]
